FAERS Safety Report 16325956 (Version 1)
Quarter: 2019Q2

REPORT INFORMATION
  Report Type: Spontaneous
  Country: DE (occurrence: DE)
  Receive Date: 20190517
  Receipt Date: 20190517
  Transmission Date: 20190711
  Serious: Yes (Hospitalization)
  Sender: FDA-Public Use
  Company Number: DE-MYLANLABS-2019M1046011

PATIENT
  Sex: Male

DRUGS (3)
  1. LEVETIRACETAM. [Suspect]
     Active Substance: LEVETIRACETAM
     Indication: PARTIAL SEIZURES
     Dosage: UNK
     Route: 065
  2. TRILEPTAL [Concomitant]
     Active Substance: OXCARBAZEPINE
     Indication: PARTIAL SEIZURES
  3. TOPAMAX [Concomitant]
     Active Substance: TOPIRAMATE
     Indication: PARTIAL SEIZURES

REACTIONS (3)
  - Psychomotor retardation [Unknown]
  - Hallucination, auditory [Unknown]
  - Disorientation [Unknown]

NARRATIVE: CASE EVENT DATE: 201806
